FAERS Safety Report 8429565-X (Version None)
Quarter: 2012Q2

REPORT INFORMATION
  Report Type: 
  Country: None (occurrence: None)
  Receive Date: 20120612
  Receipt Date: 20120604
  Transmission Date: 20120825
  Serious: Yes (Other)
  Sender: FDA-Public Use
  Company Number: US-ABBOTT-12P-163-0943167-00

PATIENT
  Sex: Female

DRUGS (2)
  1. HUMIRA [Suspect]
     Indication: PSORIATIC ARTHROPATHY
     Route: 058
     Dates: start: 20100101, end: 20120401
  2. HUMIRA [Suspect]
     Indication: ANKYLOSING SPONDYLITIS

REACTIONS (3)
  - DEAFNESS BILATERAL [None]
  - EAR INFECTION BACTERIAL [None]
  - DRUG INEFFECTIVE [None]
